FAERS Safety Report 7941676-1 (Version None)
Quarter: 2011Q4

REPORT INFORMATION
  Report Type: 
  Country: None (occurrence: None)
  Receive Date: 20111128
  Receipt Date: 20111128
  Transmission Date: 20120403
  Serious: No
  Sender: FDA-Public Use
  Company Number: None

PATIENT
  Age: 51 Year
  Sex: Male
  Weight: 145 kg

DRUGS (1)
  1. TELAVANCIN HYDROCHLORIDE [Suspect]
     Indication: SOFT TISSUE INFECTION
     Dosage: 1500MG
     Route: 042
     Dates: start: 20111107, end: 20111124

REACTIONS (1)
  - AGEUSIA [None]
